FAERS Safety Report 7361467-2 (Version None)
Quarter: 2011Q1

REPORT INFORMATION
  Report Type: 
  Country: None (occurrence: None)
  Receive Date: 20110315
  Receipt Date: 20110315
  Transmission Date: 20110831
  Serious: Yes (Other)
  Sender: FDA-Public Use
  Company Number: None

PATIENT
  Age: 73 Year
  Sex: Female
  Weight: 62.5964 kg

DRUGS (2)
  1. R. TANNA TABLET - PRASCO LABS [Suspect]
     Indication: PHARYNGITIS STREPTOCOCCAL
     Dosage: 1 TABLET TWICE DAILY BY MOUTH
     Route: 048
     Dates: start: 20110110
  2. R. TANNA TABLET - PRASCO LABS [Suspect]
     Indication: PHARYNGITIS STREPTOCOCCAL
     Dosage: 1 TABLET TWICE DAILY BY MOUTH
     Route: 048
     Dates: start: 20110111

REACTIONS (4)
  - BLOOD PRESSURE SYSTOLIC INCREASED [None]
  - PRESYNCOPE [None]
  - LOSS OF CONSCIOUSNESS [None]
  - TREMOR [None]
